FAERS Safety Report 6339462-1 (Version None)
Quarter: 2009Q3

REPORT INFORMATION
  Report Type: 
  Country: None (occurrence: None)
  Receive Date: 20090903
  Receipt Date: 20090826
  Transmission Date: 20100115
  Serious: Yes (Hospitalization)
  Sender: FDA-Public Use
  Company Number: CA-JNJFOC-20090809362

PATIENT
  Sex: Female
  Weight: 44 kg

DRUGS (3)
  1. REMICADE [Suspect]
     Indication: RHEUMATOID ARTHRITIS
     Route: 042
  2. METHOTREXATE [Concomitant]
  3. PANTOPRAZOLE SODIUM [Concomitant]

REACTIONS (1)
  - ABDOMINAL NEOPLASM [None]
